FAERS Safety Report 21714113 (Version 2)
Quarter: 2022Q4

REPORT INFORMATION
  Report Type: Spontaneous
  Country: CN (occurrence: CN)
  Receive Date: 20221212
  Receipt Date: 20221212
  Transmission Date: 20230113
  Serious: Yes (Death, Life-Threatening, Hospitalization, Other)
  Sender: FDA-Public Use
  Company Number: CN-PFIZER INC-202201346493

PATIENT
  Sex: Female

DRUGS (12)
  1. VORICONAZOLE [Suspect]
     Active Substance: VORICONAZOLE
     Indication: Antifungal treatment
     Dosage: 0.2 G Q12H
     Route: 042
     Dates: start: 202006, end: 202006
  2. VORICONAZOLE [Suspect]
     Active Substance: VORICONAZOLE
     Indication: Scedosporium infection
     Dosage: 0.2 G, 2X/DAY
     Route: 048
     Dates: start: 202006
  3. METHYLPREDNISOLONE [Concomitant]
     Active Substance: METHYLPREDNISOLONE
     Indication: Systemic lupus erythematosus
     Dosage: 44 MG, 1X/DAY
     Route: 048
     Dates: start: 2020
  4. MYCOPHENOLATE MOFETIL [Concomitant]
     Active Substance: MYCOPHENOLATE MOFETIL
     Indication: Systemic lupus erythematosus
     Dosage: FREQ:12 H;
     Route: 048
     Dates: start: 2020
  5. ISONIAZID [Concomitant]
     Active Substance: ISONIAZID
     Indication: Antibiotic therapy
     Dosage: 0.6 G, 1X/DAY
     Dates: start: 202006
  6. RIFAMPIN [Concomitant]
     Active Substance: RIFAMPIN
     Indication: Antibiotic therapy
     Dosage: 0.45 G, 1X/DAY
     Dates: start: 202006
  7. PYRAZINAMIDE [Concomitant]
     Active Substance: PYRAZINAMIDE
     Indication: Antibiotic therapy
     Dosage: 0.5 G, 3X/DAY
     Dates: start: 202006
  8. ETHAMBUTOL [Concomitant]
     Active Substance: ETHAMBUTOL HYDROCHLORIDE
     Indication: Antibiotic therapy
     Dosage: 0.75 G, 1X/DAY
     Dates: start: 202006
  9. CEFTRIAXONE [Concomitant]
     Active Substance: CEFTRIAXONE
     Indication: Bacterial infection
     Dosage: 2 G, 2X/DAY
     Route: 042
     Dates: start: 202006
  10. DEXAMETHASONE [Concomitant]
     Active Substance: DEXAMETHASONE
     Indication: Antiinflammatory therapy
     Dosage: 10 MG, 1X/DAY
     Dates: start: 202006
  11. MEROPENEM [Concomitant]
     Active Substance: MEROPENEM
     Dosage: 0.5 G, 3X/DAY
     Dates: start: 202006
  12. VANCOMYCIN [Concomitant]
     Active Substance: VANCOMYCIN
     Dosage: 0.5 G Q12H
     Dates: start: 202006

REACTIONS (1)
  - Drug ineffective [Fatal]

NARRATIVE: CASE EVENT DATE: 20200601
